FAERS Safety Report 6912431-6 (Version None)
Quarter: 2010Q3

REPORT INFORMATION
  Report Type: 
  Country: None (occurrence: None)
  Receive Date: 20100806
  Receipt Date: 20080716
  Transmission Date: 20110219
  Serious: No
  Sender: FDA-Public Use
  Company Number: US-PFIZER INC-2008027970

PATIENT
  Sex: Male

DRUGS (8)
  1. DETROL LA [Suspect]
     Indication: HYPERTONIC BLADDER
     Route: 048
     Dates: start: 20060701
  2. COZAAR [Concomitant]
     Dosage: 20
  3. TAMSULOSIN HCL [Concomitant]
     Dosage: 0.4
  4. AMARYL [Concomitant]
  5. ALLEGRA [Concomitant]
     Dosage: 180
  6. SIMVASTATIN [Concomitant]
     Dosage: 10 AT BEDTIME
  7. METFORMIN HCL [Concomitant]
     Dosage: 1000
  8. FLONASE [Concomitant]

REACTIONS (1)
  - DRUG INEFFECTIVE [None]
